FAERS Safety Report 16589355 (Version 2)
Quarter: 2019Q4

REPORT INFORMATION
  Report Type: Spontaneous
  Country: US (occurrence: US)
  Receive Date: 20190718
  Receipt Date: 20191114
  Transmission Date: 20200122
  Serious: Yes (Other)
  Sender: FDA-Public Use
  Company Number: US-HBP-2019US019240

PATIENT
  Sex: Male

DRUGS (9)
  1. PROPRANOLOL HCL [Concomitant]
     Active Substance: PROPRANOLOL HYDROCHLORIDE
  2. SERTRALINE HCL [Concomitant]
     Active Substance: SERTRALINE HYDROCHLORIDE
  3. NITROSTAT [Concomitant]
     Active Substance: NITROGLYCERIN
  4. ACITRETIN. [Concomitant]
     Active Substance: ACITRETIN
  5. TAMSULOSIN HCL [Concomitant]
     Active Substance: TAMSULOSIN HYDROCHLORIDE
  6. RANITIDINE HCL [Concomitant]
     Active Substance: RANITIDINE HYDROCHLORIDE
  7. FUROSEMIDE. [Concomitant]
     Active Substance: FUROSEMIDE
  8. INTRON A [Concomitant]
     Active Substance: INTERFERON ALFA-2B
  9. VALCHLOR [Suspect]
     Active Substance: MECHLORETHAMINE
     Indication: CUTANEOUS T-CELL LYMPHOMA
     Dosage: TOPICAL FILM, SINGLE
     Route: 061
     Dates: start: 201501

REACTIONS (2)
  - Application site pain [Not Recovered/Not Resolved]
  - Hypersensitivity [Unknown]
